FAERS Safety Report 15406760 (Version 1)
Quarter: 2018Q3

REPORT INFORMATION
  Report Type: Spontaneous
  Country: US (occurrence: US)
  Receive Date: 20180920
  Receipt Date: 20180920
  Transmission Date: 20181010
  Serious: Yes (Other)
  Sender: FDA-Public Use
  Company Number: US-CHIESI USA INC-US-CHSI-17-00045

PATIENT
  Age: 65 Year

DRUGS (2)
  1. CLEVIPREX [Suspect]
     Active Substance: CLEVIDIPINE
     Indication: BLOOD PRESSURE MANAGEMENT
     Route: 065
  2. CLEVIPREX [Suspect]
     Active Substance: CLEVIDIPINE
     Route: 065

REACTIONS (1)
  - Hypoxia [Recovered/Resolved]
